FAERS Safety Report 6607859-8 (Version None)
Quarter: 2010Q1

REPORT INFORMATION
  Report Type: 
  Country: None (occurrence: None)
  Receive Date: 20100301
  Receipt Date: 20100219
  Transmission Date: 20100710
  Serious: Yes (Other)
  Sender: FDA-Public Use
  Company Number: AX-ASTRAZENECA-2010SE07247

PATIENT
  Age: 50 Year
  Sex: Female

DRUGS (5)
  1. ESOMEPRAZOLE [Suspect]
     Indication: REFLUX LARYNGITIS
  2. CALCIUM [Concomitant]
     Indication: HYPOPARATHYROIDISM
  3. CALCIUM [Concomitant]
     Indication: HYPOCALCAEMIA
  4. CALCITRIOL [Concomitant]
     Indication: HYPOPARATHYROIDISM
  5. CALCITRIOL [Concomitant]
     Indication: HYPOCALCAEMIA

REACTIONS (1)
  - HYPOCALCAEMIA [None]
